FAERS Safety Report 7770729-6 (Version None)
Quarter: 2011Q3

REPORT INFORMATION
  Report Type: 
  Country: None (occurrence: None)
  Receive Date: 20110922
  Receipt Date: 20100902
  Transmission Date: 20111222
  Serious: Yes (Other)
  Sender: FDA-Public Use
  Company Number: US-ASTRAZENECA-2010SE41640

PATIENT
  Sex: Male
  Weight: 99.8 kg

DRUGS (4)
  1. NORVASC [Concomitant]
     Indication: BLOOD PRESSURE
  2. SEROQUEL [Suspect]
     Indication: MAJOR DEPRESSION
     Route: 048
  3. EFFEXOR [Concomitant]
     Indication: DEPRESSION
  4. HYDRALAZINE HCL [Concomitant]
     Indication: BLOOD PRESSURE

REACTIONS (3)
  - SUICIDAL IDEATION [None]
  - INSOMNIA [None]
  - DRUG DOSE OMISSION [None]
